FAERS Safety Report 12990620 (Version 1)
Quarter: 2016Q4

REPORT INFORMATION
  Report Type: Spontaneous
  Country: US (occurrence: US)
  Receive Date: 20161201
  Receipt Date: 20161201
  Transmission Date: 20170207
  Serious: Yes (Other)
  Sender: FDA-Public Use
  Company Number: US-MYLANLABS-2016M1051564

PATIENT

DRUGS (2)
  1. BETAMETHASONE. [Suspect]
     Active Substance: BETAMETHASONE
     Indication: PAIN MANAGEMENT
     Dosage: 12MG (2ML)
     Route: 008
  2. BUPIVACAINE. [Concomitant]
     Active Substance: BUPIVACAINE
     Indication: PAIN MANAGEMENT
     Dosage: 4ML OF 0.25% BUPIVACAINE
     Route: 008

REACTIONS (1)
  - Paraparesis [Recovering/Resolving]
